FAERS Safety Report 4675600-4 (Version None)
Quarter: 2005Q2

REPORT INFORMATION
  Report Type: 
  Country: None (occurrence: None)
  Receive Date: 20050527
  Receipt Date: 20050422
  Transmission Date: 20051028
  Serious: Yes (Other)
  Sender: FDA-Public Use
  Company Number: US-BRISTOL-MYERS SQUIBB COMPANY-12943627

PATIENT
  Age: 11 Year
  Sex: Male

DRUGS (1)
  1. ABILIFY [Suspect]
     Indication: BIPOLAR DISORDER
     Dosage: 2.5 MG NOV-03; INCREASED TO 3.5 MG AND 5 MG ON ALTERNATING DAYS IN MAR-05; D/C 16-APR-05.
     Dates: start: 20031101, end: 20050416

REACTIONS (1)
  - WHITE BLOOD CELL COUNT DECREASED [None]
